FAERS Safety Report 23721864 (Version 1)
Quarter: 2024Q2

REPORT INFORMATION
  Report Type: Spontaneous
  Country: US (occurrence: US)
  Receive Date: 20240409
  Receipt Date: 20240409
  Transmission Date: 20240716
  Serious: Yes (Other)
  Sender: FDA-Public Use
  Company Number: US-BAYER-2024A050684

PATIENT
  Age: 70 Year
  Sex: Female

DRUGS (2)
  1. ASPIRIN [Suspect]
     Active Substance: ASPIRIN
     Indication: Ulcer
  2. NAPROXEN [Suspect]
     Active Substance: NAPROXEN

REACTIONS (2)
  - Ulcer [None]
  - Off label use [None]
